FAERS Safety Report 9049862 (Version 1)
Quarter: 2013Q1

REPORT INFORMATION
  Report Type: Spontaneous
  Country: US (occurrence: US)
  Receive Date: 20130205
  Receipt Date: 20130205
  Transmission Date: 20140127
  Serious: Yes (Hospitalization)
  Sender: FDA-Public Use
  Company Number: US-SANOFI-AVENTIS-2013SA008886

PATIENT
  Sex: Male

DRUGS (3)
  1. ZOLPIDEM TARTRATE [Suspect]
  2. DRUG USED IN DIABETES [Concomitant]
  3. ASPIRIN [Concomitant]

REACTIONS (2)
  - Road traffic accident [Unknown]
  - Drug screen positive [Unknown]
